FAERS Safety Report 24742937 (Version 1)
Quarter: 2024Q4

REPORT INFORMATION
  Report Type: Spontaneous
  Country: US (occurrence: US)
  Receive Date: 20241217
  Receipt Date: 20241217
  Transmission Date: 20250114
  Serious: Yes (Hospitalization, Other)
  Sender: GRIFOLS
  Company Number: US-IGSA-BIG0032030

PATIENT
  Age: 44 Year
  Sex: Female

DRUGS (3)
  1. GAMUNEX-C [Suspect]
     Active Substance: HUMAN IMMUNOGLOBULIN G
     Indication: Neuromyelitis optica spectrum disorder
     Dosage: 40 GRAM, Q.4WK.
     Route: 042
     Dates: start: 20231107
  2. GAMUNEX-C [Suspect]
     Active Substance: HUMAN IMMUNOGLOBULIN G
     Indication: Off label use
  3. ROCEPHIN [Concomitant]
     Active Substance: CEFTRIAXONE SODIUM
     Route: 042

REACTIONS (6)
  - Vomiting [Unknown]
  - Urinary tract infection [Unknown]
  - Adnexa uteri mass [Unknown]
  - Pelvic floor dysfunction [Unknown]
  - Pyrexia [Unknown]
  - Adenomyosis [Unknown]
